FAERS Safety Report 7329126-X (Version None)
Quarter: 2011Q1

REPORT INFORMATION
  Report Type: 
  Country: None (occurrence: None)
  Receive Date: 20110222
  Receipt Date: 20110211
  Transmission Date: 20110831
  Serious: Yes (Life-Threatening, Disabling, Other)
  Sender: FDA-Public Use
  Company Number: 2011MA001465

PATIENT
  Age: 51 Year
  Sex: Female

DRUGS (2)
  1. FEMOSTON [Concomitant]
  2. FLUOXETINE [Suspect]
     Indication: ANXIETY
     Dosage: 20 MG, BID, PO
     Route: 048
     Dates: start: 20031007, end: 20101220

REACTIONS (3)
  - COUGH [None]
  - INTERSTITIAL LUNG DISEASE [None]
  - ALVEOLITIS FIBROSING [None]
